FAERS Safety Report 7608557-4 (Version None)
Quarter: 2011Q3

REPORT INFORMATION
  Report Type: 
  Country: None (occurrence: None)
  Receive Date: 20110714
  Receipt Date: 20110704
  Transmission Date: 20111222
  Serious: Yes (Other)
  Sender: FDA-Public Use
  Company Number: PHHY2009CA41690

PATIENT
  Sex: Male

DRUGS (2)
  1. SANDOSTATIN LAR [Suspect]
     Indication: NEUROENDOCRINE CARCINOMA
     Dosage: 20 MG EVERY 4 WEEKS
     Route: 030
     Dates: start: 20090828
  2. SANDOSTATIN LAR [Suspect]
     Dosage: 30 MG EVERY 4 WEEKS
     Route: 030

REACTIONS (17)
  - EPIGASTRIC DISCOMFORT [None]
  - FEELING COLD [None]
  - MALAISE [None]
  - OEDEMA [None]
  - GASTROINTESTINAL DISORDER [None]
  - FREQUENT BOWEL MOVEMENTS [None]
  - ABDOMINAL DISTENSION [None]
  - EATING DISORDER SYMPTOM [None]
  - PAIN IN EXTREMITY [None]
  - DIARRHOEA [None]
  - NASOPHARYNGITIS [None]
  - COUGH [None]
  - INFLUENZA [None]
  - FATIGUE [None]
  - GASTRIC HAEMORRHAGE [None]
  - STRESS [None]
  - INJECTION SITE PAIN [None]
